FAERS Safety Report 10053475 (Version 3)
Quarter: 2014Q2

REPORT INFORMATION
  Report Type: Report from Study
  Country: CA (occurrence: CA)
  Receive Date: 20140402
  Receipt Date: 20140507
  Transmission Date: 20141212
  Serious: Yes (Hospitalization, Other)
  Sender: FDA-Public Use
  Company Number: PHHY2014CA038739

PATIENT
  Age: 39 Year
  Sex: Male

DRUGS (14)
  1. CLOZARIL [Suspect]
     Dates: start: 20130529
  2. LORAZEPAM [Concomitant]
     Dosage: 2 MG, QHS
  3. EPIVAL [Concomitant]
     Dosage: 500 MG, BID
  4. PROPRANOLOL [Concomitant]
     Dosage: 30 MG, TID
  5. VITAMIN D [Concomitant]
     Dosage: 2000 IU, UNK
     Dates: start: 20080715
  6. VITAMIN B12 [Concomitant]
     Dosage: 1000 MG, QD
  7. CENTRUM FORTE [Concomitant]
  8. MAGNESIUM [Concomitant]
     Dosage: 167 MG, UNK
  9. UREMOL [Concomitant]
  10. SELSUN [Concomitant]
  11. AVAMYS [Concomitant]
  12. SEROQUEL [Concomitant]
     Indication: INSOMNIA
     Dosage: 100 MG, UNK
  13. SEROQUEL [Concomitant]
     Indication: ABNORMAL BEHAVIOUR
  14. TYLENOL [Suspect]

REACTIONS (22)
  - Pneumonia [Unknown]
  - Lethargy [Unknown]
  - Cough [Not Recovered/Not Resolved]
  - Diarrhoea [Unknown]
  - Hypotension [Unknown]
  - Dehydration [Unknown]
  - Fall [Unknown]
  - Dysphagia [Unknown]
  - Blood albumin decreased [Unknown]
  - Sleep disorder [Recovering/Resolving]
  - Weight decreased [Recovering/Resolving]
  - Eye swelling [Unknown]
  - Gait disturbance [Unknown]
  - Endocrine disorder [Unknown]
  - Affective disorder [Unknown]
  - Cerebral atrophy [Unknown]
  - General physical health deterioration [Unknown]
  - Malaise [Unknown]
  - Fatigue [Unknown]
  - Sedation [Unknown]
  - Tremor [Unknown]
  - Heart rate decreased [Unknown]
